FAERS Safety Report 19705524 (Version 1)
Quarter: 2021Q3

REPORT INFORMATION
  Report Type: Spontaneous
  Country: US (occurrence: US)
  Receive Date: 20210816
  Receipt Date: 20210816
  Transmission Date: 20211014
  Serious: No
  Sender: FDA-Public Use
  Company Number: US-TAKEDA-2021TUS050253

PATIENT
  Sex: Female

DRUGS (4)
  1. CHLORTHALIDON [Concomitant]
     Active Substance: CHLORTHALIDONE
  2. VALSARTAN. [Concomitant]
     Active Substance: VALSARTAN
  3. NINLARO [Suspect]
     Active Substance: IXAZOMIB CITRATE
     Indication: PLASMA CELL MYELOMA
     Dosage: 3 MILLIGRAM
     Route: 048
     Dates: start: 20210623
  4. AMLODIPINE [Concomitant]
     Active Substance: AMLODIPINE BESYLATE

REACTIONS (1)
  - Nausea [Unknown]
